FAERS Safety Report 10638076 (Version 1)
Quarter: 2014Q4

REPORT INFORMATION
  Report Type: Spontaneous
  Country: US (occurrence: None)
  Receive Date: 20141121
  Receipt Date: 20141121
  Transmission Date: 20150529
  Serious: No
  Sender: FDA-Public Use
  Company Number: 163-10004-14073226

PATIENT
  Age: 56 Year
  Sex: Female

DRUGS (4)
  1. VERAPAMIL (VERAPAMIL) (SUSTAINED-RELEASE CAPSULE) [Concomitant]
  2. DOXAZOSIN (DOXAZOSINE) (TABLETS) [Concomitant]
  3. OTEZLA [Suspect]
     Active Substance: APREMILAST
     Indication: PSORIATIC ARTHROPATHY
     Dosage: 60 MG, 2 IN 1 D, PO
     Route: 048
     Dates: start: 20140710
  4. COZAAR (LOSARTAN POTASSIUM) (TABLETS) [Concomitant]

REACTIONS (4)
  - Rash [None]
  - Headache [None]
  - Nausea [None]
  - Diarrhoea [None]

NARRATIVE: CASE EVENT DATE: 20140711
